FAERS Safety Report 21325099 (Version 2)
Quarter: 2022Q3

REPORT INFORMATION
  Report Type: Report from Study
  Country: IN (occurrence: IN)
  Receive Date: 20220912
  Receipt Date: 20220920
  Transmission Date: 20221027
  Serious: Yes (Hospitalization)
  Sender: FDA-Public Use
  Company Number: IN-JNJFOC-20220909347

PATIENT
  Age: 55 Year
  Sex: Female
  Weight: 42 kg

DRUGS (10)
  1. AMIVANTAMAB [Suspect]
     Active Substance: AMIVANTAMAB
     Indication: Non-small cell lung cancer metastatic
     Dosage: COMPLETED CYCLE 3 ON 24-AUG-2022; ?1,400 MG (1,750 MG IF BODY WEIGHT }=80 KG) ON CYCLE 1 DAYS 1/2, 8
     Route: 042
     Dates: start: 20220712
  2. CARBOPLATIN [Suspect]
     Active Substance: CARBOPLATIN
     Indication: Non-small cell lung cancer metastatic
     Dosage: AUC 5; FOR UP TO 4 CYCLES; COMPLETED CYCLE 3 ON 24-AUG-2022
     Route: 042
     Dates: start: 20220712
  3. PEMETREXED [Suspect]
     Active Substance: PEMETREXED
     Indication: Non-small cell lung cancer metastatic
     Dosage: FOR UP TO 4 CYCLES, THEN MAINTENANCE UNTIL DISEASE PROGRESSION; COMPLETED CYCLE 3 ON 24-AUG-2022
     Route: 042
     Dates: start: 20220712
  4. TELMISARTAN [Concomitant]
     Active Substance: TELMISARTAN
     Indication: Hypertension
     Route: 048
     Dates: start: 20190101
  5. THYROXINE [Concomitant]
     Active Substance: LEVOTHYROXINE
     Indication: Hypothyroidism
     Route: 048
     Dates: start: 20190101
  6. HAEMUP [Concomitant]
     Indication: Non-small cell lung cancer
     Route: 048
     Dates: start: 20220703
  7. RANITIDINE HYDROCHLORIDE [Concomitant]
     Active Substance: RANITIDINE HYDROCHLORIDE
     Indication: Antacid therapy
     Route: 048
     Dates: start: 20220710
  8. DEXAMETHASONE [Concomitant]
     Active Substance: DEXAMETHASONE
     Indication: Prophylaxis
     Route: 048
     Dates: start: 20220710
  9. IVABRADINE [Concomitant]
     Active Substance: IVABRADINE
     Indication: Sinus tachycardia
     Route: 048
     Dates: start: 20220711
  10. LORAZEPAM [Concomitant]
     Active Substance: LORAZEPAM
     Indication: Sinus tachycardia
     Route: 048
     Dates: start: 20220711

REACTIONS (1)
  - Neutropenia [Recovered/Resolved]

NARRATIVE: CASE EVENT DATE: 20220902
